FAERS Safety Report 18618457 (Version 1)
Quarter: 2020Q4

REPORT INFORMATION
  Report Type: Spontaneous
  Country: CA (occurrence: CA)
  Receive Date: 20201215
  Receipt Date: 20201215
  Transmission Date: 20210114
  Serious: Yes (Death, Hospitalization, Other)
  Sender: FDA-Public Use
  Company Number: CA-AMGEN-CANSP2020201682

PATIENT
  Age: 54 Year
  Sex: Female

DRUGS (2)
  1. VECTIBIX [Suspect]
     Active Substance: PANITUMUMAB
     Indication: COLON CANCER METASTATIC
     Dosage: 6 MILLIGRAM/KILOGRAM, Q2WK
     Route: 065
  2. VECTIBIX [Suspect]
     Active Substance: PANITUMUMAB
     Dosage: DOSE REDUCTION TO 50%
     Route: 065

REACTIONS (6)
  - Hypokalaemia [Unknown]
  - Small intestinal obstruction [Unknown]
  - Hypoalbuminaemia [Unknown]
  - Respiratory failure [Fatal]
  - Acute respiratory distress syndrome [Fatal]
  - Hypomagnesaemia [Unknown]
